FAERS Safety Report 13462135 (Version 1)
Quarter: 2017Q2

REPORT INFORMATION
  Report Type: Spontaneous
  Country: US (occurrence: US)
  Receive Date: 20170420
  Receipt Date: 20170420
  Transmission Date: 20170830
  Serious: Yes (Other)
  Sender: FDA-Public Use
  Company Number: US-SA-2017SA066768

PATIENT
  Age: 67 Year
  Sex: Female

DRUGS (3)
  1. ZYRTEC [Concomitant]
     Active Substance: CETIRIZINE HYDROCHLORIDE
     Indication: PREMEDICATION
  2. LEMTRADA [Suspect]
     Active Substance: ALEMTUZUMAB
     Route: 041
  3. TYLENOL [Concomitant]
     Active Substance: ACETAMINOPHEN
     Indication: PREMEDICATION

REACTIONS (8)
  - Headache [Unknown]
  - Feeling cold [Unknown]
  - Nausea [Unknown]
  - Back pain [Unknown]
  - Seizure [Unknown]
  - Loss of consciousness [Recovered/Resolved]
  - Posture abnormal [Unknown]
  - Tremor [Unknown]
